FAERS Safety Report 17600225 (Version 2)
Quarter: 2020Q4

REPORT INFORMATION
  Report Type: Spontaneous
  Country: IE (occurrence: IE)
  Receive Date: 20200330
  Receipt Date: 20201030
  Transmission Date: 20210113
  Serious: Yes (Hospitalization, Other)
  Sender: FDA-Public Use
  Company Number: IE-ELI_LILLY_AND_COMPANY-IE202003010379

PATIENT
  Age: 58 Year
  Sex: Female
  Weight: 45 kg

DRUGS (14)
  1. CYTARABINE. [Suspect]
     Active Substance: CYTARABINE
     Indication: DIFFUSE LARGE B-CELL LYMPHOMA
     Dosage: UNK, FIRST LINE
     Route: 042
     Dates: start: 20190729
  2. DOXORUBICIN [Suspect]
     Active Substance: DOXORUBICIN
     Indication: DIFFUSE LARGE B-CELL LYMPHOMA
     Dosage: UNK, FIRST LINE
     Route: 042
     Dates: start: 20190729
  3. MABTHERA [Suspect]
     Active Substance: RITUXIMAB
     Dosage: UNK, SECOND LINE
     Route: 042
     Dates: start: 20200123
  4. VINCRISTINE [Suspect]
     Active Substance: VINCRISTINE
     Indication: DIFFUSE LARGE B-CELL LYMPHOMA
     Dosage: UNK UNK, UNKNOWN
     Route: 042
     Dates: start: 20190729
  5. CYCLOPHOSPHAMIDE. [Suspect]
     Active Substance: CYCLOPHOSPHAMIDE
     Indication: DIFFUSE LARGE B-CELL LYMPHOMA
     Dosage: UNK, FIRST LINE
     Route: 042
     Dates: start: 20190729
  6. MABTHERA [Suspect]
     Active Substance: RITUXIMAB
     Indication: DIFFUSE LARGE B-CELL LYMPHOMA
     Dosage: 525 MG,FIRST LINE
     Route: 042
     Dates: start: 20190729
  7. DEXAMETHASONE. [Suspect]
     Active Substance: DEXAMETHASONE
     Indication: DIFFUSE LARGE B-CELL LYMPHOMA
     Dosage: UNK, UNKNOWN
     Route: 065
     Dates: start: 20200123
  8. METHOTREXATE. [Suspect]
     Active Substance: METHOTREXATE
     Indication: DIFFUSE LARGE B-CELL LYMPHOMA
     Dosage: UNK, FIRST LINE
     Route: 042
     Dates: start: 20190729
  9. G-CSF [Suspect]
     Active Substance: GRANULOCYTE COLONY-STIMULATING FACTOR NOS
     Indication: DIFFUSE LARGE B-CELL LYMPHOMA
     Dosage: UNK, UNKNOWN
     Route: 065
  10. BENDAMUSTINE [Suspect]
     Active Substance: BENDAMUSTINE
     Indication: DIFFUSE LARGE B-CELL LYMPHOMA
     Dosage: 1 CYCLE, THIRD LINE
     Route: 042
     Dates: start: 202002
  11. MABTHERA [Suspect]
     Active Substance: RITUXIMAB
     Dosage: THIRD LINE
     Route: 042
     Dates: start: 20200217
  12. POLATUZUMAB VEDOTIN. [Suspect]
     Active Substance: POLATUZUMAB VEDOTIN
     Indication: DIFFUSE LARGE B-CELL LYMPHOMA
     Dosage: UNK, UNKNOWN
     Route: 065
  13. GEMCITABINE HYDROCHLORIDE. [Suspect]
     Active Substance: GEMCITABINE HYDROCHLORIDE
     Indication: DIFFUSE LARGE B-CELL LYMPHOMA
     Dosage: UNK UNK, SECOND LINE
     Route: 042
     Dates: start: 20200123
  14. CISPLATIN. [Suspect]
     Active Substance: CISPLATIN
     Indication: DIFFUSE LARGE B-CELL LYMPHOMA
     Dosage: UNK, SECOND LINE
     Route: 042
     Dates: start: 20200123

REACTIONS (8)
  - Leukaemic lymphoma [Unknown]
  - Skin mass [Unknown]
  - Diffuse large B-cell lymphoma recurrent [Unknown]
  - Bone pain [Recovered/Resolved]
  - Thrombocytopenia [Unknown]
  - Cystitis haemorrhagic [Unknown]
  - Off label use [Unknown]
  - Febrile neutropenia [Unknown]
